FAERS Safety Report 12202264 (Version 4)
Quarter: 2018Q4

REPORT INFORMATION
  Report Type: Spontaneous
  Country: FR (occurrence: FR)
  Receive Date: 20160322
  Receipt Date: 20181221
  Transmission Date: 20190204
  Serious: Yes (Hospitalization)
  Sender: FDA-Public Use
  Company Number: FR-PFIZER INC-2016159075

PATIENT
  Age: 76 Year
  Sex: Male

DRUGS (6)
  1. DALACINE [Suspect]
     Active Substance: CLINDAMYCIN
     Indication: INTERVERTEBRAL DISCITIS
     Dosage: 600 MG, 4X/DAY
     Route: 048
     Dates: start: 20151030
  2. DALACINE [Interacting]
     Active Substance: CLINDAMYCIN
     Indication: STAPHYLOCOCCAL INFECTION
  3. RIFADINE [Interacting]
     Active Substance: RIFAMPIN
     Indication: INTERVERTEBRAL DISCITIS
     Dosage: 900 MG, DAILY
     Route: 048
     Dates: start: 20151030
  4. CLOXACILLINE [Concomitant]
     Active Substance: CLOXACILLIN
     Indication: INTERVERTEBRAL DISCITIS
  5. CLOXACILLINE [Concomitant]
     Active Substance: CLOXACILLIN
     Indication: STAPHYLOCOCCAL INFECTION
  6. RIFADINE [Interacting]
     Active Substance: RIFAMPIN
     Indication: STAPHYLOCOCCAL INFECTION

REACTIONS (2)
  - Underdose [Recovered/Resolved]
  - Drug interaction [Recovered/Resolved]

NARRATIVE: CASE EVENT DATE: 20151120
